FAERS Safety Report 6740210-1 (Version None)
Quarter: 2010Q2

REPORT INFORMATION
  Report Type: 
  Country: None (occurrence: None)
  Receive Date: 20100525
  Receipt Date: 20100511
  Transmission Date: 20101027
  Serious: Yes (Hospitalization)
  Sender: FDA-Public Use
  Company Number: B0568202A

PATIENT
  Sex: Female

DRUGS (4)
  1. BOOSTRIX-POLIO [Suspect]
     Indication: PROPHYLAXIS
     Route: 030
     Dates: start: 20090310, end: 20090310
  2. AUGMENTIN '125' [Suspect]
     Indication: HYPERTHERMIA
     Route: 065
     Dates: start: 20090311, end: 20090313
  3. GENTAMICIN [Suspect]
     Indication: HYPERTHERMIA
     Route: 065
     Dates: start: 20090311, end: 20090313
  4. ROCEPHIN [Suspect]
     Indication: HYPERTHERMIA
     Route: 065
     Dates: start: 20090312, end: 20090316

REACTIONS (6)
  - C-REACTIVE PROTEIN INCREASED [None]
  - DERMATITIS ALLERGIC [None]
  - DRUG EXPOSURE VIA BREAST MILK [None]
  - HYPERTHERMIA [None]
  - PYREXIA [None]
  - WHITE BLOOD CELL COUNT INCREASED [None]
